FAERS Safety Report 23513873 (Version 1)
Quarter: 2024Q1

REPORT INFORMATION
  Report Type: Spontaneous
  Country: NL (occurrence: NL)
  Receive Date: 20240212
  Receipt Date: 20240212
  Transmission Date: 20240410
  Serious: Yes (Life-Threatening, Other)
  Sender: FDA-Public Use
  Company Number: None

PATIENT
  Age: 49 Year
  Sex: Female
  Weight: 56 kg

DRUGS (2)
  1. BRIDION [Suspect]
     Active Substance: SUGAMMADEX
     Indication: Reversal of sedation
     Dosage: 200MG
     Dates: start: 20240122
  2. EPINEPHRINE [Concomitant]
     Active Substance: EPINEPHRINE
     Dosage: INFUSION, 1 MILLIGRAM PER MILLIGRAM

REACTIONS (1)
  - Kounis syndrome [Recovered/Resolved]
